FAERS Safety Report 10756246 (Version 1)
Quarter: 2015Q1

REPORT INFORMATION
  Report Type: Spontaneous
  Country: FR (occurrence: FR)
  Receive Date: 20150202
  Receipt Date: 20150202
  Transmission Date: 20150721
  Serious: Yes (Life-Threatening, Hospitalization, Other)
  Sender: FDA-Public Use
  Company Number: FR-009507513-1502FRA000408

PATIENT
  Age: 94 Year
  Sex: Female

DRUGS (7)
  1. KARDEGIC [Concomitant]
     Active Substance: ASPIRIN LYSINE
     Indication: PRODUCT USED FOR UNKNOWN INDICATION
     Route: 065
  2. COUMADIN [Interacting]
     Active Substance: WARFARIN SODIUM
     Indication: PULMONARY EMBOLISM
     Dosage: 4 MG, QD
     Route: 048
     Dates: start: 20141229, end: 20150105
  3. SECTRAL [Concomitant]
     Active Substance: ACEBUTOLOL HYDROCHLORIDE
     Indication: PRODUCT USED FOR UNKNOWN INDICATION
     Route: 065
  4. ORGARAN [Suspect]
     Active Substance: DANAPAROID SODIUM
     Indication: PULMONARY EMBOLISM
     Dosage: 750 UI. ANTI XA/0,6
     Route: 058
     Dates: start: 20141226, end: 20150107
  5. PEVARYL [Interacting]
     Active Substance: ECONAZOLE NITRATE
     Indication: FUNGAL INFECTION
     Dosage: 1 DF, QD
     Route: 061
     Dates: start: 20150102, end: 20150107
  6. LERCAN [Concomitant]
     Active Substance: LERCANIDIPINE
     Indication: PRODUCT USED FOR UNKNOWN INDICATION
     Route: 065
  7. NITROGLYCERIN. [Concomitant]
     Active Substance: NITROGLYCERIN
     Indication: PRODUCT USED FOR UNKNOWN INDICATION
     Route: 062

REACTIONS (7)
  - Haematoma [Not Recovered/Not Resolved]
  - Potentiating drug interaction [Recovered/Resolved]
  - Anticoagulation drug level above therapeutic [Recovered/Resolved]
  - Acute kidney injury [Recovered/Resolved]
  - Haemorrhagic anaemia [Recovered/Resolved]
  - International normalised ratio increased [Recovered/Resolved]
  - Arterial haemorrhage [Recovered/Resolved with Sequelae]

NARRATIVE: CASE EVENT DATE: 20150105
